FAERS Safety Report 7271101-8 (Version None)
Quarter: 2011Q1

REPORT INFORMATION
  Report Type: 
  Country: None (occurrence: None)
  Receive Date: 20110202
  Receipt Date: 20110123
  Transmission Date: 20110831
  Serious: Yes (Life-Threatening)
  Sender: FDA-Public Use
  Company Number: CN-GENENTECH-312953

PATIENT
  Age: 35 Year
  Sex: Female

DRUGS (6)
  1. MABTHERA [Suspect]
     Indication: LYMPHOMA
     Dosage: UNK, Q14D
     Route: 065
     Dates: end: 20110101
  2. VINCRISTINE [Concomitant]
     Indication: LYMPHOMA
     Dosage: UNK, Q14D
  3. CYCLOPHOSPHAMIDE [Concomitant]
     Indication: LYMPHOMA
     Dosage: UNK, Q14D
  4. PREDNISONE [Concomitant]
     Indication: LYMPHOMA
     Dosage: UNK
  5. ETOPOSIDE [Concomitant]
     Indication: LYMPHOMA
     Dosage: UNK, Q14D
  6. PHARMORUBICIN [Concomitant]
     Indication: LYMPHOMA
     Dosage: UNK, Q14D

REACTIONS (2)
  - PNEUMOCYSTIS JIROVECI PNEUMONIA [None]
  - ASPHYXIA [None]
